FAERS Safety Report 11865618 (Version 1)
Quarter: 2015Q4

REPORT INFORMATION
  Report Type: Spontaneous
  Country: JP (occurrence: JP)
  Receive Date: 20151223
  Receipt Date: 20151223
  Transmission Date: 20160305
  Serious: Yes (Hospitalization, Other)
  Sender: FDA-Public Use
  Company Number: JP-UNICHEM LABORATORIES LIMITED-UCM201512-000898

PATIENT
  Age: 56 Year
  Sex: Female

DRUGS (2)
  1. TIZANIDINE. [Suspect]
     Active Substance: TIZANIDINE
  2. ETIZOLAM [Suspect]
     Active Substance: ETIZOLAM

REACTIONS (7)
  - Cardiac failure [Unknown]
  - Shock [Recovered/Resolved]
  - Sinus bradycardia [Unknown]
  - Hypotension [Recovered/Resolved]
  - Sinus tachycardia [Recovered/Resolved]
  - Intentional overdose [Unknown]
  - Altered state of consciousness [Unknown]
